FAERS Safety Report 6805682-2 (Version None)
Quarter: 2010Q2

REPORT INFORMATION
  Report Type: 
  Country: None (occurrence: None)
  Receive Date: 20100628
  Receipt Date: 20080628
  Transmission Date: 20101027
  Serious: Yes (Other)
  Sender: FDA-Public Use
  Company Number: US-PFIZER INC-2008054766

PATIENT
  Sex: Male

DRUGS (1)
  1. SUTENT [Suspect]
     Indication: BRAIN NEOPLASM

REACTIONS (3)
  - DEEP VEIN THROMBOSIS [None]
  - PANCREATITIS [None]
  - PULMONARY EMBOLISM [None]
